FAERS Safety Report 9140940 (Version 1)
Quarter: 2013Q1

REPORT INFORMATION
  Report Type: Spontaneous
  Country: US (occurrence: US)
  Receive Date: 20130305
  Receipt Date: 20130305
  Transmission Date: 20140127
  Serious: Yes (Other)
  Sender: FDA-Public Use
  Company Number: US-PFIZER INC-2013074257

PATIENT
  Age: 61 Year
  Sex: Male
  Weight: 92.97 kg

DRUGS (3)
  1. EFFEXOR XR [Suspect]
     Indication: DEPRESSION
     Dosage: 150 MG, 1X/DAY
     Route: 048
  2. EFFEXOR XR [Suspect]
     Indication: ANXIETY
  3. LIPITOR [Concomitant]
     Dosage: 10 MG, 1X/DAY

REACTIONS (1)
  - Neoplasm malignant [Unknown]
